FAERS Safety Report 7066132-7 (Version None)
Quarter: 2010Q4

REPORT INFORMATION
  Report Type: 
  Country: None (occurrence: None)
  Receive Date: 20101027
  Receipt Date: 20100409
  Transmission Date: 20110411
  Serious: Yes (Other)
  Sender: FDA-Public Use
  Company Number: HQWYE370122JUL04

PATIENT
  Sex: Female
  Weight: 90.8 kg

DRUGS (5)
  1. PREMPRO [Suspect]
  2. MEDROXYPROGESTERONE ACETATE [Suspect]
  3. ESTROGENS [Suspect]
  4. PREMARIN [Suspect]
  5. PROVERA [Suspect]

REACTIONS (7)
  - BREAST CALCIFICATIONS [None]
  - BREAST CANCER [None]
  - BREAST CANCER STAGE II [None]
  - DIVERTICULUM INTESTINAL [None]
  - HAEMORRHOIDS [None]
  - POST PROCEDURAL INFECTION [None]
  - SEROMA [None]
